FAERS Safety Report 7915612-8 (Version None)
Quarter: 2011Q4

REPORT INFORMATION
  Report Type: 
  Country: None (occurrence: None)
  Receive Date: 20111115
  Receipt Date: 20110922
  Transmission Date: 20120403
  Serious: No
  Sender: FDA-Public Use
  Company Number: US-BRISTOL-MYERS SQUIBB COMPANY-15792310

PATIENT
  Age: 65 Year
  Sex: Male

DRUGS (1)
  1. YERVOY [Suspect]
     Indication: MALIGNANT MELANOMA
     Dosage: OVER 90MIN,INFUSION
     Route: 042
     Dates: start: 20110525

REACTIONS (2)
  - LIP SWELLING [None]
  - URTICARIA [None]
